FAERS Safety Report 6525896-9 (Version None)
Quarter: 2010Q1

REPORT INFORMATION
  Report Type: 
  Country: None (occurrence: None)
  Receive Date: 20100104
  Receipt Date: 20091223
  Transmission Date: 20100710
  Serious: Yes (Other)
  Sender: FDA-Public Use
  Company Number: TW-JNJCH-2009033023

PATIENT
  Age: 30 Year
  Sex: Male

DRUGS (1)
  1. REGAINE 5% [Suspect]
     Indication: ALOPECIA
     Route: 061

REACTIONS (4)
  - APPLICATION SITE PRURITUS [None]
  - ERYTHEMA [None]
  - OEDEMA PERIPHERAL [None]
  - TINEA INFECTION [None]
